FAERS Safety Report 25663365 (Version 1)
Quarter: 2025Q3

REPORT INFORMATION
  Report Type: Spontaneous
  Country: US (occurrence: US)
  Receive Date: 20250811
  Receipt Date: 20250811
  Transmission Date: 20251021
  Serious: Yes (Death)
  Sender: CHIESI
  Company Number: US-CHIESI-2025CHF05532

PATIENT

DRUGS (1)
  1. KENGREAL [Suspect]
     Active Substance: CANGRELOR
     Indication: Product used for unknown indication
     Route: 065

REACTIONS (2)
  - Vascular stent thrombosis [Fatal]
  - Off label use [Recovered/Resolved]

NARRATIVE: CASE EVENT DATE: 20250101
